FAERS Safety Report 5877718-7 (Version None)
Quarter: 2008Q3

REPORT INFORMATION
  Report Type: 
  Country: None (occurrence: None)
  Receive Date: 20080911
  Receipt Date: 20080902
  Transmission Date: 20090109
  Serious: Yes (Other)
  Sender: FDA-Public Use
  Company Number: GB-JNJFOC-20080601566

PATIENT
  Age: 50 Year
  Sex: Male

DRUGS (11)
  1. RISPERIDONE [Suspect]
     Indication: SCHIZOPHRENIA, PARANOID TYPE
     Route: 065
  2. GLICLAZIDE [Suspect]
     Indication: DRUG USE FOR UNKNOWN INDICATION
     Route: 065
  3. ARIPIPRAZOLE [Suspect]
     Route: 065
  4. ARIPIPRAZOLE [Suspect]
     Indication: DRUG USE FOR UNKNOWN INDICATION
     Route: 065
  5. METFORMIN HCL [Suspect]
     Route: 065
  6. METFORMIN HCL [Suspect]
     Indication: DRUG USE FOR UNKNOWN INDICATION
     Route: 065
  7. OLANZAPINE [Concomitant]
     Route: 065
  8. OLANZAPINE [Concomitant]
     Indication: SCHIZOPHRENIA, PARANOID TYPE
     Route: 065
  9. AMLODIPINE [Concomitant]
     Indication: DRUG USE FOR UNKNOWN INDICATION
     Route: 065
  10. PERINDOPRIL ERBUMINE [Concomitant]
     Indication: HYPERTENSION
     Route: 065
  11. SIMVASTATIN [Concomitant]
     Indication: DRUG USE FOR UNKNOWN INDICATION
     Route: 065

REACTIONS (4)
  - HYPOGLYCAEMIA [None]
  - TREATMENT NONCOMPLIANCE [None]
  - URINARY INCONTINENCE [None]
  - WEIGHT DECREASED [None]
